FAERS Safety Report 5999790-6 (Version None)
Quarter: 2008Q4

REPORT INFORMATION
  Report Type: 
  Country: None (occurrence: None)
  Receive Date: 20081215
  Receipt Date: 20081029
  Transmission Date: 20090506
  Serious: No
  Sender: FDA-Public Use
  Company Number: US-AMGEN-KDL191875

PATIENT
  Sex: Male

DRUGS (1)
  1. ENBREL [Suspect]
     Indication: PSORIASIS
     Route: 058

REACTIONS (6)
  - COUGH [None]
  - LIP DRY [None]
  - LIP EXFOLIATION [None]
  - LIP HAEMORRHAGE [None]
  - ORAL MUCOSAL EXFOLIATION [None]
  - OROPHARYNGEAL PAIN [None]
